FAERS Safety Report 21081615 (Version 1)
Quarter: 2022Q3

REPORT INFORMATION
  Report Type: Spontaneous
  Country: GB (occurrence: None)
  Receive Date: 20220714
  Receipt Date: 20220714
  Transmission Date: 20221027
  Serious: Yes (Other)
  Sender: FDA-Public Use
  Company Number: 2022A254529

PATIENT
  Age: 79 Year
  Sex: Female
  Weight: 50 kg

DRUGS (6)
  1. OMEPRAZOLE [Suspect]
     Active Substance: OMEPRAZOLE
     Indication: Gastritis
     Dosage: TAKE ONE EACH MORNING TO LOWER STOMACH ACID LEVELS
     Route: 065
     Dates: start: 20220624
  2. ADCAL [Concomitant]
     Dosage: TAKE ONE TWICE DAILY
     Route: 065
     Dates: start: 20180713
  3. ASPIRIN [Concomitant]
     Active Substance: ASPIRIN
     Dosage: TAKE ONE DAILY TO THIN BLOOD AND PREVENT CARDIO
     Route: 065
     Dates: start: 20190320, end: 20220627
  4. ATORVASTATIN [Concomitant]
     Active Substance: ATORVASTATIN
     Dosage: TAKE ONE AT NIGHT TO LOWER CHOLESTEROL
     Route: 065
     Dates: start: 20190417
  5. FELODIPINE [Concomitant]
     Active Substance: FELODIPINE
     Dosage: TAKE ONE DAILY, ANNUAL BLOODS/BP BIRTH MONTH
     Route: 065
     Dates: start: 20220314
  6. LATANOPROST [Concomitant]
     Active Substance: LATANOPROST
     Dosage: ONE DROP ONCE DAILY BOTH EYES
     Route: 065
     Dates: start: 20190208

REACTIONS (3)
  - Rectal haemorrhage [Recovered/Resolved]
  - Nausea [Recovered/Resolved]
  - Diarrhoea [Recovered/Resolved]

NARRATIVE: CASE EVENT DATE: 20220627
